FAERS Safety Report 7002367-7 (Version None)
Quarter: 2010Q3

REPORT INFORMATION
  Report Type: 
  Country: None (occurrence: None)
  Receive Date: 20100920
  Receipt Date: 20100603
  Transmission Date: 20110219
  Serious: No
  Sender: FDA-Public Use
  Company Number: US-ASTRAZENECA-2010SE25689

PATIENT
  Sex: Male

DRUGS (1)
  1. SEROQUEL XR [Suspect]
     Indication: PERSONALITY DISORDER
     Route: 048

REACTIONS (5)
  - ANXIETY [None]
  - BREATH ODOUR [None]
  - DRY MOUTH [None]
  - SOMNOLENCE [None]
  - WRONG DRUG ADMINISTERED [None]
